FAERS Safety Report 25918439 (Version 1)
Quarter: 2025Q4

REPORT INFORMATION
  Report Type: Spontaneous
  Country: US (occurrence: None)
  Receive Date: 20251010
  Receipt Date: 20251010
  Transmission Date: 20260117
  Serious: Yes (Other)
  Sender: FDA-CTU
  Company Number: None

PATIENT
  Age: 20 Year
  Sex: Female
  Weight: 62.1 kg

DRUGS (3)
  1. ISOTRETINOIN [Suspect]
     Active Substance: ISOTRETINOIN
     Indication: Acne
     Dates: start: 20250324, end: 20251003
  2. ETHINYL ESTRADIOL\NORGESTIMATE [Suspect]
     Active Substance: ETHINYL ESTRADIOL\NORGESTIMATE
  3. DEVICE [Suspect]
     Active Substance: DEVICE

REACTIONS (4)
  - Drug exposure before pregnancy [None]
  - Pregnancy on oral contraceptive [None]
  - Pregnancy with contraceptive device [None]
  - Product dose omission issue [None]

NARRATIVE: CASE EVENT DATE: 20251009
